FAERS Safety Report 8831665 (Version 2)
Quarter: 2012Q4

REPORT INFORMATION
  Report Type: 
  Country: US (occurrence: US)
  Receive Date: 20121009
  Receipt Date: 20121127
  Transmission Date: 20130627
  Serious: Yes (Death)
  Sender: FDA-Public Use
  Company Number: US-ELI_LILLY_AND_COMPANY-US201210002117

PATIENT
  Age: 62 Year
  Sex: Female

DRUGS (5)
  1. ALIMTA [Suspect]
     Dosage: UNK
     Route: 042
     Dates: start: 20120613
  2. ALIMTA [Suspect]
     Dosage: UNK
     Dates: start: 20120705
  3. VITAMIN B12 [Concomitant]
     Dosage: 1000 ug, UNK
     Route: 058
     Dates: start: 20120607
  4. FOLIC ACID [Concomitant]
     Dosage: 1 mg, UNK
     Route: 048
     Dates: start: 20120607
  5. DEXAMETHASONE [Concomitant]
     Dosage: 4 mg, other
     Dates: start: 20120611

REACTIONS (1)
  - Malignant neoplasm progression [Fatal]
